FAERS Safety Report 4310509-7 (Version None)
Quarter: 2004Q1

REPORT INFORMATION
  Report Type: 
  Country: None (occurrence: None)
  Receive Date: 20040302
  Receipt Date: 20040129
  Transmission Date: 20041129
  Serious: Yes (Hospitalization)
  Sender: FDA-Public Use
  Company Number: F01200400179

PATIENT
  Age: 69 Year
  Sex: Female

DRUGS (3)
  1. OXALIPLATIN - SOLUTION - 234 MG [Suspect]
     Indication: COLON CANCER
     Dosage: 234 MG Q3W
     Route: 042
     Dates: start: 20040102, end: 20040102
  2. OXALIPLATIN - SOLUTION - 234 MG [Suspect]
     Indication: SURGERY
     Dosage: 234 MG Q3W
     Route: 042
     Dates: start: 20040102, end: 20040102
  3. CAPECITABINE - TABLET - 1800 MG [Suspect]
     Dosage: 1800 MG TWICE A DAY PER ORAL FROM D1
     Route: 048
     Dates: start: 20040102

REACTIONS (2)
  - DIARRHOEA [None]
  - SEPSIS [None]
